FAERS Safety Report 7339014-0 (Version None)
Quarter: 2011Q1

REPORT INFORMATION
  Report Type: 
  Country: None (occurrence: None)
  Receive Date: 20110308
  Receipt Date: 20110304
  Transmission Date: 20110831
  Serious: Yes (Disabling, Other)
  Sender: FDA-Public Use
  Company Number: FI-PFIZER INC-2011047538

PATIENT
  Sex: Female

DRUGS (6)
  1. BUVENTOL [Concomitant]
     Indication: ASTHMA
  2. LIPITOR [Suspect]
     Indication: HYPERCHOLESTEROLAEMIA
     Dosage: 10 MG, 1X/DAY
     Dates: start: 19960101
  3. LIPITOR [Suspect]
     Indication: HYPERLIPIDAEMIA
  4. BECLONASAL [Concomitant]
  5. BECLOMET [Concomitant]
     Indication: ASTHMA
  6. AERIUS [Concomitant]

REACTIONS (28)
  - ANGINA PECTORIS [None]
  - DYSPEPSIA [None]
  - HEADACHE [None]
  - NEURALGIA [None]
  - FLATULENCE [None]
  - CONSTIPATION [None]
  - SCIATICA [None]
  - BACK PAIN [None]
  - MUSCULOSKELETAL PAIN [None]
  - PAIN IN EXTREMITY [None]
  - DRY SKIN [None]
  - ARTHRALGIA [None]
  - MUSCULOSKELETAL DISORDER [None]
  - VISUAL ACUITY REDUCED [None]
  - BURNING SENSATION [None]
  - GASTROINTESTINAL DISORDER [None]
  - PAIN [None]
  - NECK PAIN [None]
  - HYPERTENSION [None]
  - MUSCLE SPASMS [None]
  - GASTROINTESTINAL PAIN [None]
  - ALOPECIA [None]
  - EYE PAIN [None]
  - OEDEMA PERIPHERAL [None]
  - PAIN OF SKIN [None]
  - CHEST PAIN [None]
  - ARRHYTHMIA [None]
  - FIBROMYALGIA [None]
